FAERS Safety Report 13076161 (Version 1)
Quarter: 2016Q4

REPORT INFORMATION
  Report Type: Spontaneous
  Country: US (occurrence: US)
  Receive Date: 20161230
  Receipt Date: 20161230
  Transmission Date: 20170207
  Serious: No
  Sender: FDA-Public Use
  Company Number: US-SUPERNUS PHARMACEUTICALS, INC.-2016SUP00082

PATIENT
  Age: 56 Year
  Sex: Female
  Weight: 61.22 kg

DRUGS (3)
  1. OXTELLAR XR [Suspect]
     Active Substance: OXCARBAZEPINE
     Indication: SEIZURE
     Dosage: 600 MG, 1X/DAY
     Route: 048
     Dates: start: 20160413, end: 201604
  2. HYDROCHLOROTHIAZIDE AND LISINOPRIL [Concomitant]
     Active Substance: HYDROCHLOROTHIAZIDE\LISINOPRIL
     Dosage: UNK, 1X/DAY
  3. MULTIVITAMIN [Concomitant]
     Active Substance: VITAMINS

REACTIONS (2)
  - Confusional state [Unknown]
  - Drug dose omission [Unknown]

NARRATIVE: CASE EVENT DATE: 201604
